FAERS Safety Report 7652038-9 (Version None)
Quarter: 2011Q3

REPORT INFORMATION
  Report Type: 
  Country: None (occurrence: None)
  Receive Date: 20110803
  Receipt Date: 20110728
  Transmission Date: 20111222
  Serious: No
  Sender: FDA-Public Use
  Company Number: US-BIOGENIDEC-2011BI028324

PATIENT
  Sex: Female

DRUGS (2)
  1. TYSABRI [Suspect]
     Indication: MULTIPLE SCLEROSIS
     Route: 042
     Dates: start: 20100901, end: 20110401
  2. BACLOFEN [Concomitant]
     Indication: MUSCLE SPASMS

REACTIONS (10)
  - MEMORY IMPAIRMENT [None]
  - MUSCLE SPASMS [None]
  - CANDIDIASIS [None]
  - HYPOAESTHESIA [None]
  - ASTHENIA [None]
  - COGNITIVE DISORDER [None]
  - NEUROGENIC BLADDER [None]
  - SKIN TIGHTNESS [None]
  - BAND SENSATION [None]
  - MULTIPLE SCLEROSIS RELAPSE [None]
